FAERS Safety Report 11972630 (Version 1)
Quarter: 2016Q1

REPORT INFORMATION
  Report Type: Other
  Country: US (occurrence: US)
  Receive Date: 20160128
  Receipt Date: 20160128
  Transmission Date: 20160526
  Serious: Yes (Hospitalization, Other)
  Sender: FDA-Public Use
  Company Number: US-B. BRAUN MEDICAL INC.-1047038

PATIENT
  Age: 25 Year
  Sex: Male
  Weight: 80 kg

DRUGS (20)
  1. METRONIDAZOLE. [Suspect]
     Active Substance: METRONIDAZOLE
     Route: 042
  2. FENTANYL. [Interacting]
     Active Substance: FENTANYL
  3. PROPOFOL. [Concomitant]
     Active Substance: PROPOFOL
     Route: 042
  4. NEOSTIGMINE [Concomitant]
     Active Substance: NEOSTIGMINE
     Route: 042
  5. ONDANSETRON [Interacting]
     Active Substance: ONDANSETRON
     Route: 042
  6. ETOMIDATE. [Concomitant]
     Active Substance: ETOMIDATE
     Route: 042
  7. MORPHINE [Concomitant]
     Active Substance: MORPHINE
     Route: 042
  8. MIDAZOLAM [Concomitant]
     Active Substance: MIDAZOLAM\MIDAZOLAM HYDROCHLORIDE
     Route: 042
  9. CEFAZOLIN [Concomitant]
     Active Substance: CEFAZOLIN
     Route: 042
  10. DANTROLENE [Concomitant]
     Active Substance: DANTROLENE
     Route: 042
  11. METOCLOPRAMIDE. [Interacting]
     Active Substance: METOCLOPRAMIDE
     Route: 042
  12. SUCCINYLCHOLINE [Concomitant]
     Active Substance: SUCCINYLCHOLINE
     Route: 042
  13. ERTAPENEM [Concomitant]
     Active Substance: ERTAPENEM
  14. SEVOFLURANE. [Concomitant]
     Active Substance: SEVOFLURANE
     Route: 050
  15. GLYCOPYRROLATE. [Concomitant]
     Active Substance: GLYCOPYRROLATE
     Route: 042
  16. FLUOXETINE [Interacting]
     Active Substance: FLUOXETINE HYDROCHLORIDE
  17. CISATRACURIUM. [Concomitant]
     Active Substance: CISATRACURIUM
     Route: 042
  18. METHYLENE BLUE. [Interacting]
     Active Substance: METHYLENE BLUE
     Route: 042
  19. HALOPERIDOL. [Concomitant]
     Active Substance: HALOPERIDOL
     Route: 042
  20. HYDROMORPHONE [Concomitant]
     Active Substance: HYDROMORPHONE
     Route: 042

REACTIONS (2)
  - Metabolic acidosis [None]
  - Serotonin syndrome [Unknown]
